FAERS Safety Report 12777779 (Version 1)
Quarter: 2016Q3

REPORT INFORMATION
  Report Type: Spontaneous
  Country: US (occurrence: US)
  Receive Date: 20160924
  Receipt Date: 20160924
  Transmission Date: 20161109
  Serious: No
  Sender: FDA-Public Use
  Company Number: US-JAZZ-2016-US-010634

PATIENT
  Sex: Male
  Weight: 86.17 kg

DRUGS (18)
  1. XYREM [Suspect]
     Active Substance: SODIUM OXYBATE
     Indication: SOMNOLENCE
     Dosage: 2.25 G, BID
     Route: 048
     Dates: start: 201105, end: 2011
  2. FLONASE [Concomitant]
     Active Substance: FLUTICASONE PROPIONATE
  3. MULTI VITAMIN [Concomitant]
     Active Substance: VITAMINS
  4. XYREM [Suspect]
     Active Substance: SODIUM OXYBATE
     Dosage: 3 G, BID
     Route: 048
     Dates: start: 201506
  5. DEXAMETHASONE SODIUM [Concomitant]
  6. LOVAZA [Concomitant]
     Active Substance: OMEGA-3-ACID ETHYL ESTERS
  7. XYREM [Suspect]
     Active Substance: SODIUM OXYBATE
     Dosage: 3 G, BID
     Route: 048
     Dates: start: 201112, end: 2012
  8. MELATONIN [Concomitant]
     Active Substance: MELATONIN
  9. NEXIUM [Concomitant]
     Active Substance: ESOMEPRAZOLE MAGNESIUM
  10. XYREM [Suspect]
     Active Substance: SODIUM OXYBATE
     Indication: NARCOLEPSY
     Dosage: 2.25 G, BID
     Route: 048
     Dates: start: 200812
  11. CLARINEX [Concomitant]
     Active Substance: DESLORATADINE
  12. TESTIM [Concomitant]
     Active Substance: TESTOSTERONE
  13. XYREM [Suspect]
     Active Substance: SODIUM OXYBATE
     Dosage: 3 G, BID
     Route: 048
     Dates: start: 201306, end: 2014
  14. NUVIGIL [Concomitant]
     Active Substance: ARMODAFINIL
  15. MINOXIDIL. [Concomitant]
     Active Substance: MINOXIDIL
  16. ALLERGY SHOTS [Concomitant]
     Active Substance: UNSPECIFIED INGREDIENT
  17. CREATINE [Concomitant]
     Active Substance: CREATINE
  18. FENOFIBRATE. [Concomitant]
     Active Substance: FENOFIBRATE

REACTIONS (1)
  - Initial insomnia [Unknown]
